FAERS Safety Report 17871332 (Version 1)
Quarter: 2020Q2

REPORT INFORMATION
  Report Type: Spontaneous
  Country: US (occurrence: US)
  Receive Date: 20200605
  Receipt Date: 20200605
  Transmission Date: 20200714
  Serious: No
  Sender: FDA-Public Use
  Company Number: None

PATIENT
  Age: 74 Year
  Sex: Female

DRUGS (8)
  1. XGEVA [Concomitant]
     Active Substance: DENOSUMAB
  2. LETROZOLE. [Concomitant]
     Active Substance: LETROZOLE
  3. PREDNISONE. [Concomitant]
     Active Substance: PREDNISONE
  4. PHOSPHONUS SUPPLEMENT [Concomitant]
  5. TRAMADOL. [Concomitant]
     Active Substance: TRAMADOL
  6. VITAMIN D [Concomitant]
     Active Substance: VITAMIN D NOS
  7. IBRANCE [Suspect]
     Active Substance: PALBOCICLIB
     Indication: BREAST CANCER FEMALE
     Dosage: D X 21DAYS
     Route: 048
     Dates: start: 20191212, end: 20200602
  8. LEVOTHYROXINE. [Concomitant]
     Active Substance: LEVOTHYROXINE

REACTIONS (2)
  - Therapy cessation [None]
  - Liver function test increased [None]

NARRATIVE: CASE EVENT DATE: 20200602
